FAERS Safety Report 8012717-0 (Version None)
Quarter: 2011Q4

REPORT INFORMATION
  Report Type: 
  Country: None (occurrence: None)
  Receive Date: 20111229
  Receipt Date: 20111220
  Transmission Date: 20120403
  Serious: Yes (Hospitalization)
  Sender: FDA-Public Use
  Company Number: US-BAYER-2011-111090

PATIENT
  Age: 18 Year
  Sex: Female
  Weight: 100 kg

DRUGS (3)
  1. PROZAC [Concomitant]
  2. YASMIN [Suspect]
     Indication: CONTRACEPTION
     Dosage: UNK
     Route: 048
     Dates: start: 20030201, end: 20090101
  3. YASMIN [Suspect]
     Indication: MENSTRUAL CYCLE MANAGEMENT

REACTIONS (5)
  - GALLBLADDER DISORDER [None]
  - PAIN [None]
  - INJURY [None]
  - CHOLELITHIASIS [None]
  - NAUSEA [None]
